FAERS Safety Report 7198564-0 (Version None)
Quarter: 2010Q4

REPORT INFORMATION
  Report Type: 
  Country: None (occurrence: None)
  Receive Date: 20101227
  Receipt Date: 20101221
  Transmission Date: 20110411
  Serious: Yes (Hospitalization)
  Sender: FDA-Public Use
  Company Number: CO-B.I. PHARMACEUTICALS,INC./RIDGEFIELD-2010-RA-00523RA

PATIENT
  Age: 84 Year
  Sex: Female
  Weight: 65 kg

DRUGS (6)
  1. DABIGATRAN ETEXILATE [Suspect]
     Indication: CEREBROVASCULAR ACCIDENT PROPHYLAXIS
     Dosage: 220 MG
     Route: 048
     Dates: start: 20101116, end: 20101206
  2. FUROSEMIDE [Concomitant]
     Indication: CARDIAC FAILURE ACUTE
     Route: 048
     Dates: start: 20101116
  3. SPIRONOLACTONE [Concomitant]
     Indication: CARDIAC FAILURE ACUTE
     Dosage: 100 MG
     Route: 048
     Dates: start: 20101116
  4. METOPROLOL TARTRATE [Concomitant]
     Indication: CARDIAC FAILURE ACUTE
     Route: 048
     Dates: start: 20101116
  5. LOSARTAN [Concomitant]
     Indication: CARDIAC FAILURE ACUTE
     Route: 048
     Dates: start: 20101116
  6. PROPAFENONE HCL [Concomitant]
     Indication: ATRIAL FIBRILLATION
     Route: 048
     Dates: start: 20101116

REACTIONS (1)
  - RENAL FAILURE ACUTE [None]
